FAERS Safety Report 23894910 (Version 1)
Quarter: 2024Q2

REPORT INFORMATION
  Report Type: Spontaneous
  Country: US (occurrence: US)
  Receive Date: 20240524
  Receipt Date: 20240524
  Transmission Date: 20240717
  Serious: Yes (Other)
  Sender: FDA-Public Use
  Company Number: US-AJANTA-2024AJA00088

PATIENT
  Age: 73 Year
  Sex: Male
  Weight: 192 kg

DRUGS (13)
  1. RANOLAZINE [Suspect]
     Active Substance: RANOLAZINE
     Indication: Angina pectoris
     Dates: start: 20240426
  2. ATENOLOL [Concomitant]
     Active Substance: ATENOLOL
  3. LOSARTAN [Concomitant]
     Active Substance: LOSARTAN
  4. CALQUENCE [Concomitant]
     Active Substance: ACALABRUTINIB
  5. PLAVIX [Concomitant]
     Active Substance: CLOPIDOGREL BISULFATE
  6. FAMOTIDINE [Concomitant]
     Active Substance: FAMOTIDINE
  7. MONTELUKAST [Concomitant]
     Active Substance: MONTELUKAST SODIUM
  8. ATORVASTATIN [Concomitant]
     Active Substance: ATORVASTATIN
  9. ASPIRIN [Concomitant]
     Active Substance: ASPIRIN
  10. NIFEDIPINE [Concomitant]
     Active Substance: NIFEDIPINE
  11. DUTASTERIDE [Concomitant]
     Active Substance: DUTASTERIDE
  12. ALFUZOSIN [Concomitant]
     Active Substance: ALFUZOSIN
  13. CARAFATE [Concomitant]
     Active Substance: SUCRALFATE

REACTIONS (2)
  - Syncope [Unknown]
  - Asthenia [Unknown]

NARRATIVE: CASE EVENT DATE: 20240502
